FAERS Safety Report 16135513 (Version 1)
Quarter: 2019Q1

REPORT INFORMATION
  Report Type: Spontaneous
  Country: TR (occurrence: TR)
  Receive Date: 20190329
  Receipt Date: 20190329
  Transmission Date: 20190418
  Serious: Yes (Other)
  Sender: FDA-Public Use
  Company Number: TR-ACP NIMBLE BUYER INC-GW2019TR000041

PATIENT

DRUGS (2)
  1. ACETAMINOPHEN. [Suspect]
     Active Substance: ACETAMINOPHEN
     Indication: PYREXIA
     Dosage: 75 UNK, BID
     Route: 042
  2. ACETAMINOPHEN. [Suspect]
     Active Substance: ACETAMINOPHEN
     Dosage: 750 MG, BID
     Route: 042

REACTIONS (3)
  - Dose calculation error [Recovered/Resolved]
  - Overdose [Recovered/Resolved]
  - Hepatotoxicity [Recovered/Resolved]
